FAERS Safety Report 4284151-0 (Version None)
Quarter: 2004Q1

REPORT INFORMATION
  Report Type: 
  Country: None (occurrence: None)
  Receive Date: 20040203
  Receipt Date: 20031222
  Transmission Date: 20041129
  Serious: Yes (Hospitalization)
  Sender: FDA-Public Use
  Company Number: IT-GLAXOSMITHKLINE-B0318323A

PATIENT
  Age: 37 Year
  Sex: Male

DRUGS (4)
  1. LAMIVUDINE [Suspect]
     Indication: HIV INFECTION
     Route: 065
  2. STAVUDINE [Suspect]
     Indication: HIV INFECTION
     Route: 065
  3. NEVIRAPINE [Suspect]
     Indication: HIV INFECTION
     Route: 065
  4. TRIMETHOPRIM + SULFAMETHOXAZOL [Concomitant]
     Indication: PROPHYLAXIS
     Route: 065

REACTIONS (11)
  - APHASIA [None]
  - ATAXIA [None]
  - CHOLESTASIS [None]
  - EOSINOPHILIA [None]
  - HEPATIC NECROSIS [None]
  - HEPATITIS C [None]
  - IMMUNE RECONSTITUTION SYNDROME [None]
  - JC VIRUS INFECTION [None]
  - LIVER FUNCTION TEST ABNORMAL [None]
  - MENTAL IMPAIRMENT [None]
  - MOVEMENT DISORDER [None]
